FAERS Safety Report 18327650 (Version 1)
Quarter: 2020Q3

REPORT INFORMATION
  Report Type: Spontaneous
  Country: FR (occurrence: FR)
  Receive Date: 20200929
  Receipt Date: 20200929
  Transmission Date: 20201103
  Serious: Yes (Disabling, Other)
  Sender: FDA-Public Use
  Company Number: FR-FRESENIUS KABI-FK202010025

PATIENT
  Age: 61 Year
  Sex: Male

DRUGS (2)
  1. PREDNISONE. [Suspect]
     Active Substance: PREDNISONE
     Indication: ORBITAL MYOSITIS
     Dosage: 20?70MG
     Route: 065
  2. METHYLPREDNISOLONE (MANUFACTURER UNKNOWN) [Suspect]
     Active Substance: METHYLPREDNISOLONE
     Indication: ORBITAL MYOSITIS
     Dosage: 75?1000MG
     Route: 065

REACTIONS (3)
  - Infection [Recovered/Resolved with Sequelae]
  - Aspergillus infection [Recovered/Resolved with Sequelae]
  - Cerebral aspergillosis [Recovered/Resolved with Sequelae]

NARRATIVE: CASE EVENT DATE: 2016
